FAERS Safety Report 19279562 (Version 1)
Quarter: 2021Q2

REPORT INFORMATION
  Report Type: Other
  Country: US (occurrence: US)
  Receive Date: 20210520
  Receipt Date: 20210520
  Transmission Date: 20210717
  Serious: Yes (Hospitalization)
  Sender: FDA-Public Use
  Company Number: US-ROCHE-1996185

PATIENT
  Sex: Female

DRUGS (13)
  1. RITUXAN [Suspect]
     Active Substance: RITUXIMAB
     Indication: PRIMARY PROGRESSIVE MULTIPLE SCLEROSIS
  2. AMPYRA [Concomitant]
     Active Substance: DALFAMPRIDINE
     Route: 048
  3. DULOXETINE. [Concomitant]
     Active Substance: DULOXETINE
     Route: 048
  4. TERAZOSIN [Concomitant]
     Active Substance: TERAZOSIN HYDROCHLORIDE
     Dosage: AT BEDTIME
     Route: 048
  5. OCREVUS [Suspect]
     Active Substance: OCRELIZUMAB
     Indication: PRIMARY PROGRESSIVE MULTIPLE SCLEROSIS
     Dosage: 30 MG/ML
     Route: 042
  6. CRANBERRY. [Concomitant]
     Active Substance: CRANBERRY
  7. CHOLECALCIFEROL [Concomitant]
     Active Substance: CHOLECALCIFEROL
     Route: 048
  8. BACLOFEN. [Concomitant]
     Active Substance: BACLOFEN
     Route: 048
  9. RITUXAN [Suspect]
     Active Substance: RITUXIMAB
     Indication: MULTIPLE SCLEROSIS
     Route: 065
  10. TIZANIDINE. [Concomitant]
     Active Substance: TIZANIDINE
     Dosage: AT BEDTIME
     Route: 048
  11. POTASSIUM [Concomitant]
     Active Substance: POTASSIUM
  12. ACETAMINOPHEN;BUTALBITAL;CAFFEINE [Concomitant]
     Dosage: 325MG?50 MG?40 MG AS REQUIRED.
     Route: 048
  13. ONDANSETRON HCL [Concomitant]
     Active Substance: ONDANSETRON HYDROCHLORIDE
     Dosage: AS REQUIRED
     Route: 048

REACTIONS (10)
  - Urinary tract infection [Recovered/Resolved]
  - Hypokalaemia [Recovered/Resolved]
  - Oedema peripheral [Unknown]
  - Off label use [Unknown]
  - Asthenia [Unknown]
  - Increased tendency to bruise [Unknown]
  - Depression [Unknown]
  - Initial insomnia [Unknown]
  - Head injury [Unknown]
  - Loss of libido [Unknown]
